FAERS Safety Report 5475340-8 (Version None)
Quarter: 2007Q4

REPORT INFORMATION
  Report Type: 
  Country: None (occurrence: None)
  Receive Date: 20071001
  Receipt Date: 20061211
  Transmission Date: 20080405
  Serious: Yes (Other)
  Sender: FDA-Public Use
  Company Number: 2007MP000507

PATIENT

DRUGS (1)
  1. GLIADEL [Suspect]
     Indication: GLIOBLASTOMA MULTIFORME
     Dosage: X1; ICER

REACTIONS (5)
  - BRAIN ABSCESS [None]
  - BRAIN NEOPLASM [None]
  - GLIOSIS [None]
  - IMPLANT SITE REACTION [None]
  - NECROSIS [None]
